FAERS Safety Report 10731075 (Version 4)
Quarter: 2015Q2

REPORT INFORMATION
  Report Type: Report from Study
  Country: US (occurrence: US)
  Receive Date: 20150122
  Receipt Date: 20150507
  Transmission Date: 20150821
  Serious: Yes (Other)
  Sender: FDA-Public Use
  Company Number: US-ACTELION-A-NJ2015-111451

PATIENT
  Age: 56 Year
  Sex: Female

DRUGS (3)
  1. MACITENTAN [Suspect]
     Active Substance: MACITENTAN
     Indication: PULMONARY ARTERIAL HYPERTENSION
     Dosage: 10 MG, QD
     Route: 048
  2. ASPIRIN. [Concomitant]
     Active Substance: ASPIRIN
  3. TYVASO [Concomitant]
     Active Substance: TREPROSTINIL

REACTIONS (4)
  - Peripheral swelling [Unknown]
  - Cardioversion [Unknown]
  - Malaise [Unknown]
  - Atrial fibrillation [Unknown]
